FAERS Safety Report 6818571-4 (Version None)
Quarter: 2010Q3

REPORT INFORMATION
  Report Type: 
  Country: None (occurrence: None)
  Receive Date: 20100706
  Receipt Date: 20100628
  Transmission Date: 20110219
  Serious: Yes (Hospitalization)
  Sender: FDA-Public Use
  Company Number: US-AMGEN-KDL371523

PATIENT
  Sex: Female
  Weight: 57.7 kg

DRUGS (13)
  1. PROCRIT [Suspect]
     Indication: ANAEMIA
     Route: 058
     Dates: start: 20081118, end: 20091118
  2. IRON [Concomitant]
  3. MULTIVITAMINS AND IRON [Concomitant]
  4. TOPROL-XL [Concomitant]
     Dates: start: 20090101
  5. HEMATIDE [Concomitant]
  6. HYDROCHLOROTHIAZIDE [Concomitant]
  7. LISINOPRIL [Concomitant]
     Dates: start: 20090101
  8. ASA [Concomitant]
  9. GLUCOSAMINE [Concomitant]
  10. PLAVIX [Concomitant]
     Dates: start: 20090101
  11. NORVASC [Concomitant]
  12. SIMVASTATIN [Concomitant]
     Dates: start: 20090101
  13. CHROMAGEN FORTE [Concomitant]
     Dates: start: 20090101

REACTIONS (13)
  - ASTHENIA [None]
  - CARDIAC FAILURE CONGESTIVE [None]
  - CLOSTRIDIAL INFECTION [None]
  - FALL [None]
  - HAEMOGLOBIN DECREASED [None]
  - HYPERTENSION [None]
  - OEDEMA [None]
  - OEDEMA PERIPHERAL [None]
  - PNEUMONIA [None]
  - RENAL DISORDER [None]
  - RENAL FAILURE [None]
  - SERUM FERRITIN INCREASED [None]
  - TRANSIENT ISCHAEMIC ATTACK [None]
